FAERS Safety Report 4515438-1 (Version None)
Quarter: 2004Q4

REPORT INFORMATION
  Report Type: 
  Country: None (occurrence: None)
  Receive Date: 20041126
  Receipt Date: 20041112
  Transmission Date: 20050328
  Serious: Yes (Hospitalization)
  Sender: FDA-Public Use
  Company Number: 2004-122354-NL

PATIENT
  Age: 24 Year
  Sex: Female
  Weight: 56.8 kg

DRUGS (2)
  1. NUVARING [Suspect]
     Indication: CONTRACEPTION
     Dosage: VAGINAL
     Route: 067
     Dates: start: 20040601
  2. MONISTAT [Concomitant]

REACTIONS (6)
  - DERMATITIS ALLERGIC [None]
  - DEVICE FAILURE [None]
  - MEDICATION ERROR [None]
  - REACTION TO COLOURING [None]
  - URTICARIA GENERALISED [None]
  - VAGINAL MYCOSIS [None]
